FAERS Safety Report 23494843 (Version 1)
Quarter: 2024Q1

REPORT INFORMATION
  Report Type: Spontaneous
  Country: US (occurrence: US)
  Receive Date: 20240207
  Receipt Date: 20240207
  Transmission Date: 20240410
  Serious: No
  Sender: FDA-Public Use
  Company Number: US-GSKCCFUS-Case-01920851_AE-106964

PATIENT
  Sex: Female

DRUGS (1)
  1. FLOVENT HFA [Suspect]
     Active Substance: FLUTICASONE PROPIONATE
     Indication: Pneumonia
     Dosage: UNK UNK, BID (110 MCG)

REACTIONS (2)
  - Ageusia [Unknown]
  - Product used for unknown indication [Unknown]
